FAERS Safety Report 4504112-3 (Version None)
Quarter: 2004Q4

REPORT INFORMATION
  Report Type: 
  Country: None (occurrence: None)
  Receive Date: 20041118
  Receipt Date: 20041019
  Transmission Date: 20050328
  Serious: Yes (Hospitalization)
  Sender: FDA-Public Use
  Company Number: NL-ABBOTT-04P-114-0278088-00

PATIENT
  Sex: Male
  Weight: 76 kg

DRUGS (6)
  1. HUMIRA [Suspect]
     Indication: RHEUMATOID ARTHRITIS
     Dosage: 40 MG
     Route: 058
     Dates: start: 20040720, end: 20041013
  2. SULFASALAZINE [Concomitant]
     Indication: DRUG USE FOR UNKNOWN INDICATION
  3. ARTHROTEC [Concomitant]
     Indication: DRUG USE FOR UNKNOWN INDICATION
  4. OMEPRAZOLE [Concomitant]
     Indication: DRUG USE FOR UNKNOWN INDICATION
  5. LAMOTRIGINE [Concomitant]
     Indication: EPILEPSY
  6. COMMERCIAL HUMIRA [Concomitant]
     Indication: RHEUMATOID ARTHRITIS
     Dosage: 40 MG
     Route: 058
     Dates: start: 20040203

REACTIONS (1)
  - PULMONARY INFARCTION [None]
